FAERS Safety Report 15566967 (Version 1)
Quarter: 2018Q4

REPORT INFORMATION
  Report Type: Spontaneous
  Country: DE (occurrence: DE)
  Receive Date: 20181030
  Receipt Date: 20181030
  Transmission Date: 20190205
  Serious: Yes (Hospitalization, Other)
  Sender: FDA-Public Use
  Company Number: DE-BAYER-2018-197225

PATIENT
  Age: 19 Year
  Sex: Male
  Weight: 75 kg

DRUGS (1)
  1. CIPROBAY 500 MG [Suspect]
     Active Substance: CIPROFLOXACIN
     Indication: DYSURIA
     Dosage: 1500 MG, UNK
     Route: 048
     Dates: start: 20181007, end: 20181009

REACTIONS (7)
  - Myalgia [Recovering/Resolving]
  - Muscle twitching [Recovering/Resolving]
  - Neurodermatitis [Recovering/Resolving]
  - Sleep disorder [Recovered/Resolved]
  - Nephritis [Recovering/Resolving]
  - Anxiety disorder [Recovering/Resolving]
  - Tendon pain [Recovering/Resolving]

NARRATIVE: CASE EVENT DATE: 20181009
